FAERS Safety Report 13576437 (Version 2)
Quarter: 2017Q3

REPORT INFORMATION
  Report Type: Report from Study
  Country: CA (occurrence: CA)
  Receive Date: 20170524
  Receipt Date: 20170803
  Transmission Date: 20171127
  Serious: Yes (Other)
  Sender: FDA-Public Use
  Company Number: CA-BEH-2017080665

PATIENT

DRUGS (1)
  1. HIZENTRA [Suspect]
     Active Substance: HUMAN IMMUNOGLOBULIN G
     Indication: MYASTHENIA GRAVIS
     Route: 058

REACTIONS (11)
  - Rash [Not Recovered/Not Resolved]
  - Headache [Recovered/Resolved]
  - Dyspnoea at rest [Not Recovered/Not Resolved]
  - Nausea [Recovered/Resolved]
  - Pain [Recovering/Resolving]
  - Hyperhidrosis [Recovered/Resolved]
  - Injection site swelling [Recovered/Resolved]
  - Cough [Not Recovered/Not Resolved]
  - Rash pruritic [Recovering/Resolving]
  - Headache [Recovered/Resolved]
  - Cough [Not Recovered/Not Resolved]

NARRATIVE: CASE EVENT DATE: 20160214
